FAERS Safety Report 5625454-4 (Version None)
Quarter: 2008Q1

REPORT INFORMATION
  Report Type: 
  Country: None (occurrence: None)
  Receive Date: 20080211
  Receipt Date: 20080130
  Transmission Date: 20080703
  Serious: Yes (Life-Threatening, Hospitalization)
  Sender: FDA-Public Use
  Company Number: 20084727

PATIENT
  Age: 17 Year
  Sex: Male

DRUGS (1)
  1. LIORESAL [Suspect]
     Indication: MUSCLE SPASTICITY
     Dosage: 978 MCG,DAILY,INTRATHECAL
     Route: 037

REACTIONS (4)
  - DEVICE FAILURE [None]
  - HYPERTONIA [None]
  - MENTAL STATUS CHANGES [None]
  - PRURITUS [None]
